FAERS Safety Report 9172327 (Version 1)
Quarter: 2013Q1

REPORT INFORMATION
  Report Type: Spontaneous
  Country: US (occurrence: US)
  Receive Date: 20130319
  Receipt Date: 20130319
  Transmission Date: 20140127
  Serious: No
  Sender: FDA-Public Use
  Company Number: US-009507513-1303USA007647

PATIENT
  Age: 67 Year
  Sex: 0

DRUGS (2)
  1. TICE BCG LIVE [Suspect]
     Indication: BLADDER CANCER
  2. BCG VACCINE USP [Suspect]
     Indication: BLADDER CANCER
     Route: 043
     Dates: start: 20121215, end: 20121215

REACTIONS (4)
  - Incorrect route of drug administration [Unknown]
  - Wrong drug administered [Unknown]
  - Drug name confusion [Unknown]
  - No adverse event [Unknown]
